FAERS Safety Report 19091004 (Version 1)
Quarter: 2021Q2

REPORT INFORMATION
  Report Type: Spontaneous
  Country: US (occurrence: US)
  Receive Date: 20210405
  Receipt Date: 20210405
  Transmission Date: 20210717
  Serious: Yes (Other)
  Sender: FDA-Public Use
  Company Number: US-GLENMARK PHARMACEUTICALS-2021GMK053098

PATIENT
  Age: 66 Year
  Sex: Female

DRUGS (1)
  1. LAMOTRIGINE. [Suspect]
     Active Substance: LAMOTRIGINE
     Indication: EPILEPSY
     Dosage: UNK
     Route: 065

REACTIONS (4)
  - Lupus-like syndrome [Recovered/Resolved]
  - Weight decreased [Recovered/Resolved]
  - Lip scab [Recovered/Resolved]
  - Decreased appetite [Recovered/Resolved]
